FAERS Safety Report 23426942 (Version 1)
Quarter: 2024Q1

REPORT INFORMATION
  Report Type: Spontaneous
  Country: GB (occurrence: GB)
  Receive Date: 20240122
  Receipt Date: 20240122
  Transmission Date: 20240410
  Serious: Yes (Other)
  Sender: FDA-Public Use
  Company Number: None

PATIENT
  Age: 70 Year
  Sex: Female
  Weight: 100 kg

DRUGS (2)
  1. ORENCIA [Suspect]
     Active Substance: ABATACEPT
     Indication: Rheumatoid arthritis
     Dosage: 4 MG; ; FROM OF ADMIN: TABLET
     Dates: start: 2022
  2. ORENCIA [Suspect]
     Active Substance: ABATACEPT
     Dosage: 2 MG; ; FROM OF ADMIN: TABLET
     Dates: start: 2022

REACTIONS (2)
  - Medication error [Unknown]
  - Diverticulum [Not Recovered/Not Resolved]

NARRATIVE: CASE EVENT DATE: 20230404
